FAERS Safety Report 11205182 (Version 1)
Quarter: 2015Q2

REPORT INFORMATION
  Report Type: Spontaneous
  Country: GB (occurrence: GB)
  Receive Date: 20150622
  Receipt Date: 20150622
  Transmission Date: 20150821
  Serious: Yes (Other)
  Sender: FDA-Public Use
  Company Number: GB-JNJFOC-20150614385

PATIENT
  Age: 20 Year
  Sex: Female
  Weight: 56 kg

DRUGS (3)
  1. NORETHISTERONE [Suspect]
     Active Substance: NORETHINDRONE
     Indication: PRODUCT USED FOR UNKNOWN INDICATION
     Route: 048
     Dates: start: 20150604
  2. FLUOXETINE [Concomitant]
     Active Substance: FLUOXETINE\FLUOXETINE HYDROCHLORIDE
     Dosage: CUMULATIVE DOSE TO FIRST REACTION- 618
     Route: 065
     Dates: start: 20130924
  3. PROPRANOLOL [Concomitant]
     Active Substance: PROPRANOLOL\PROPRANOLOL HYDROCHLORIDE
     Dosage: CUMULATIVE DOSE TO FIRST REACTION- 1767
     Route: 065
     Dates: start: 20131023

REACTIONS (4)
  - Dizziness [Recovered/Resolved]
  - Diplopia [Recovered/Resolved]
  - Nausea [Recovered/Resolved]
  - Migraine without aura [Recovered/Resolved]

NARRATIVE: CASE EVENT DATE: 20150604
